FAERS Safety Report 5148195-9 (Version None)
Quarter: 2006Q4

REPORT INFORMATION
  Report Type: 
  Country: None (occurrence: None)
  Receive Date: 20061110
  Receipt Date: 20060307
  Transmission Date: 20070319
  Serious: Yes (Hospitalization, Other)
  Sender: FDA-Public Use
  Company Number: US-ELI_LILLY_AND_COMPANY-US200606000978

PATIENT
  Age: 45 Year
  Sex: Female
  Weight: 61.224 kg

DRUGS (4)
  1. ZYPREXA [Suspect]
     Dosage: 10 MG, UNK
     Dates: start: 19991001, end: 20011101
  2. QUETIAPINE [Concomitant]
     Dates: start: 20000101
  3. BUPROPION HCL [Concomitant]
     Dates: start: 20010101, end: 20020101
  4. SERTRALINE [Concomitant]
     Dates: start: 19990101, end: 20040301

REACTIONS (8)
  - BILIARY TRACT DISORDER [None]
  - BLOOD CHOLESTEROL ABNORMAL [None]
  - BLOOD TRIGLYCERIDES INCREASED [None]
  - DIABETES MELLITUS [None]
  - EPILEPSY [None]
  - HYPERGLYCAEMIA [None]
  - HYPERTENSION [None]
  - PANCREATITIS [None]
